FAERS Safety Report 6706117-0 (Version None)
Quarter: 2010Q2

REPORT INFORMATION
  Report Type: 
  Country: None (occurrence: None)
  Receive Date: 20100430
  Receipt Date: 20100430
  Transmission Date: 20101027
  Serious: Yes (Other)
  Sender: FDA-Public Use
  Company Number: None

PATIENT
  Age: 47 Year
  Sex: Female
  Weight: 66.2252 kg

DRUGS (4)
  1. PERCOCET [Suspect]
     Indication: ARTHRALGIA
     Dosage: 5-325 MG OFF AND ON SINCE 2001
     Dates: start: 20010101
  2. PERCOCET [Suspect]
     Indication: NECK PAIN
     Dosage: 5-325 MG OFF AND ON SINCE 2001
     Dates: start: 20010101
  3. PERCOCET [Suspect]
     Indication: PAIN
     Dosage: 5-325 MG OFF AND ON SINCE 2001
     Dates: start: 20010101
  4. PERCOCET [Suspect]
     Indication: ROTATOR CUFF SYNDROME
     Dosage: 5-325 MG OFF AND ON SINCE 2001
     Dates: start: 20010101

REACTIONS (5)
  - GASTRIC DISORDER [None]
  - INADEQUATE ANALGESIA [None]
  - NAUSEA [None]
  - PRODUCT SUBSTITUTION ISSUE [None]
  - VOMITING [None]
